FAERS Safety Report 9929497 (Version 1)
Quarter: 2014Q1

REPORT INFORMATION
  Report Type: Spontaneous
  Country: GB (occurrence: GB)
  Receive Date: 20140227
  Receipt Date: 20140227
  Transmission Date: 20141002
  Serious: Yes (Hospitalization)
  Sender: FDA-Public Use
  Company Number: GB-GLAXOSMITHKLINE-B0969540A

PATIENT
  Age: 79 Year
  Sex: Male

DRUGS (12)
  1. ATORVASTATIN [Suspect]
     Indication: HYPERCHOLESTEROLAEMIA
     Dosage: 40MG PER DAY
     Route: 048
     Dates: start: 200311, end: 20040311
  2. AVANDIA [Suspect]
     Indication: TYPE 2 DIABETES MELLITUS
     Dosage: 8MG PER DAY
     Route: 048
     Dates: start: 200210, end: 20040316
  3. HEDEX IBUPROFEN [Suspect]
     Indication: PRODUCT USED FOR UNKNOWN INDICATION
     Dosage: 1200MG PER DAY
     Route: 065
     Dates: start: 2001, end: 20040311
  4. AMOXICILLIN [Concomitant]
     Route: 065
     Dates: start: 20031120, end: 20031125
  5. CO-CODAMOL [Concomitant]
  6. DOXYCYCLINE [Concomitant]
     Dosage: 100MG PER DAY
     Dates: start: 20031128, end: 20031205
  7. GLICLAZIDE [Concomitant]
  8. LEVOTHYROXINE SODIUM [Concomitant]
     Dosage: 175MCG PER DAY
  9. METFORMIN [Concomitant]
     Dates: start: 20040311
  10. OXYBUTYNIN [Concomitant]
     Dosage: 10MG PER DAY
     Dates: start: 200311
  11. RAMIPRIL [Concomitant]
     Dosage: 2.5MG PER DAY
  12. SILDENAFIL [Concomitant]

REACTIONS (7)
  - Alanine aminotransferase increased [Unknown]
  - Blood alkaline phosphatase increased [Unknown]
  - Aspartate aminotransferase increased [Unknown]
  - Blood bilirubin increased [Unknown]
  - Cholelithiasis [Recovering/Resolving]
  - Jaundice [Recovered/Resolved]
  - Liver function test abnormal [Recovering/Resolving]
